FAERS Safety Report 21787387 (Version 2)
Quarter: 2023Q1

REPORT INFORMATION
  Report Type: Spontaneous
  Country: IT (occurrence: IT)
  Receive Date: 20221228
  Receipt Date: 20230118
  Transmission Date: 20230417
  Serious: Yes (Other)
  Sender: FDA-Public Use
  Company Number: IT-STADA-264894

PATIENT
  Sex: Female

DRUGS (5)
  1. ARIPIPRAZOLE [Suspect]
     Active Substance: ARIPIPRAZOLE
     Indication: Psychotic disorder
     Dosage: 30 MILLIGRAM, ONCE A DAY
     Route: 065
  2. OLANZAPINE [Suspect]
     Active Substance: OLANZAPINE
     Indication: Psychotic disorder
     Dosage: 5 MILLIGRAM, ONCE A DAY
     Route: 065
     Dates: start: 2019
  3. OLANZAPINE [Suspect]
     Active Substance: OLANZAPINE
     Dosage: 10 MILLIGRAM, ONCE A DAY (UP-TITRATION )
     Route: 065
     Dates: start: 2019, end: 2019
  4. LURASIDONE [Concomitant]
     Active Substance: LURASIDONE
     Indication: Psychotic disorder
     Dosage: 148 MILLIGRAM, ONCE A DAY
     Route: 065
  5. VENLAFAXINE [Concomitant]
     Active Substance: VENLAFAXINE HYDROCHLORIDE
     Indication: Antidepressant therapy
     Dosage: 150 MILLIGRAM, ONCE A DAY
     Route: 065

REACTIONS (3)
  - Weight increased [Unknown]
  - Sedation complication [Unknown]
  - Akathisia [Unknown]
